FAERS Safety Report 7169876-1 (Version None)
Quarter: 2010Q4

REPORT INFORMATION
  Report Type: 
  Country: None (occurrence: None)
  Receive Date: 20101217
  Receipt Date: 20101214
  Transmission Date: 20110411
  Serious: Yes (Death)
  Sender: FDA-Public Use
  Company Number: PHHY2010BR85007

PATIENT
  Sex: Male

DRUGS (5)
  1. EXELON [Suspect]
     Dosage: 1.5 MG, UNK
  2. EXELON [Suspect]
     Dosage: UNK
  3. EXELON [Suspect]
     Dosage: 9MG/5CM^2
     Route: 062
  4. GALVUS MET [Suspect]
     Dosage: 50/850MG 56CE
  5. ZELMAC [Suspect]
     Dosage: 6MG 60

REACTIONS (1)
  - DEATH [None]
